FAERS Safety Report 4633224-9 (Version None)
Quarter: 2005Q2

REPORT INFORMATION
  Report Type: 
  Country: None (occurrence: None)
  Receive Date: 20050408
  Receipt Date: 20050330
  Transmission Date: 20051028
  Serious: No
  Sender: FDA-Public Use
  Company Number: 2005-03-2171

PATIENT
  Age: 33 Year
  Sex: Female

DRUGS (1)
  1. INTRON A [Suspect]
     Indication: CHRONIC MYELOID LEUKAEMIA
     Dosage: 3 MIU QD SUBCUTANEOUS
     Route: 058

REACTIONS (3)
  - ARRESTED LABOUR [None]
  - CAESAREAN SECTION [None]
  - PREGNANCY [None]
